FAERS Safety Report 5237284-6 (Version None)
Quarter: 2007Q1

REPORT INFORMATION
  Report Type: 
  Country: None (occurrence: None)
  Receive Date: 20070213
  Receipt Date: 20070212
  Transmission Date: 20070707
  Serious: Yes (Death)
  Sender: FDA-Public Use
  Company Number: US-JNJFOC-20070202416

PATIENT
  Age: 85 Year
  Sex: Female
  Weight: 41.73 kg

DRUGS (6)
  1. CISAPRIDE [Suspect]
     Indication: GASTROINTESTINAL MOTILITY DISORDER
  2. CALAN [Concomitant]
  3. COLACE [Concomitant]
  4. LASIX [Concomitant]
  5. VASOTEC [Concomitant]
  6. PREMARIN [Concomitant]

REACTIONS (2)
  - PNEUMONIA [None]
  - RESPIRATORY ARREST [None]
